FAERS Safety Report 7348987-1 (Version None)
Quarter: 2011Q1

REPORT INFORMATION
  Report Type: 
  Country: None (occurrence: None)
  Receive Date: 20110314
  Receipt Date: 20110307
  Transmission Date: 20110831
  Serious: Yes (Life-Threatening, Hospitalization, Disabling)
  Sender: FDA-Public Use
  Company Number: US-BAYER-200924331NA

PATIENT
  Sex: Female
  Weight: 74.2 kg

DRUGS (26)
  1. SORAFENIB (RAF KINASE INHIBITOR) [Suspect]
     Route: 048
     Dates: start: 20090522, end: 20090613
  2. NITROGLYCERIN [Concomitant]
     Indication: ANGINA PECTORIS
     Route: 060
     Dates: start: 20080114
  3. OMEPRAZOLE [Concomitant]
     Indication: GASTROOESOPHAGEAL REFLUX DISEASE
     Route: 048
     Dates: start: 19980213
  4. COUMADIN [Concomitant]
     Dosage: 1 AS DIRECTED
  5. SORAFENIB (RAF KINASE INHIBITOR) [Suspect]
     Route: 048
     Dates: start: 20090626, end: 20090805
  6. SYNTHROID [Concomitant]
     Indication: HYPOTHYROIDISM
     Route: 048
     Dates: start: 19980213
  7. COUMADIN [Concomitant]
     Indication: ATRIAL FIBRILLATION
     Route: 048
     Dates: start: 20090414, end: 20090725
  8. COUMADIN [Concomitant]
     Dosage: 4 MG (DAILY DOSE), , ORAL
     Route: 048
     Dates: start: 20090805
  9. AMBIEN [Concomitant]
     Indication: INSOMNIA
     Route: 048
     Dates: start: 20090804
  10. SORAFENIB (RAF KINASE INHIBITOR) [Suspect]
     Indication: ANGINA PECTORIS
     Route: 048
     Dates: start: 20090521, end: 20090521
  11. DILTIAZEM [Concomitant]
     Indication: HYPERTENSION
     Route: 048
     Dates: start: 20090414
  12. MICARDIS [Concomitant]
     Indication: HYPERTENSION
     Route: 048
     Dates: start: 20040112
  13. MAGNESIUM OXIDE [Concomitant]
     Indication: HYPOMAGNESAEMIA
     Route: 048
     Dates: start: 20090625
  14. PHENERGAN [Concomitant]
  15. SENOKOT [Concomitant]
     Indication: CONSTIPATION
     Route: 048
     Dates: start: 20090804
  16. POTASSIUM CHLORIDE [Concomitant]
     Indication: HYPOKALAEMIA
     Route: 048
     Dates: start: 20090625
  17. SORAFENIB (RAF KINASE INHIBITOR) [Suspect]
     Route: 048
     Dates: start: 20090615, end: 20090616
  18. SORAFENIB (RAF KINASE INHIBITOR) [Suspect]
     Route: 048
     Dates: start: 20090617, end: 20090617
  19. DILTIAZEM [Concomitant]
     Route: 048
     Dates: start: 20090614
  20. MAXZIDE [Concomitant]
     Indication: HYPERTENSION
     Dosage: 25
     Route: 048
     Dates: start: 20020607
  21. CALCIUM CARBONATE [Concomitant]
     Indication: FRACTURE
     Route: 048
     Dates: start: 20010122
  22. SORAFENIB (RAF KINASE INHIBITOR) [Suspect]
     Route: 048
     Dates: start: 20090614, end: 20090614
  23. PAXIL [Concomitant]
     Indication: DEPRESSION
     Route: 048
     Dates: start: 19990604
  24. FOLBIC [Concomitant]
     Route: 048
     Dates: start: 19990427
  25. DIGOXIN [Concomitant]
     Indication: ATRIAL FIBRILLATION
     Route: 048
     Dates: start: 20090611
  26. LASIX [Concomitant]
     Indication: OEDEMA PERIPHERAL
     Route: 048
     Dates: start: 20040715

REACTIONS (7)
  - DECREASED APPETITE [None]
  - MUSCULOSKELETAL PAIN [None]
  - ABDOMINAL PAIN [None]
  - FAECAL INCONTINENCE [None]
  - BACK PAIN [None]
  - NAUSEA [None]
  - DIARRHOEA [None]
